FAERS Safety Report 5615485-2 (Version None)
Quarter: 2008Q1

REPORT INFORMATION
  Report Type: 
  Country: None (occurrence: None)
  Receive Date: 20080204
  Receipt Date: 20080204
  Transmission Date: 20080703
  Serious: Yes (Other)
  Sender: FDA-Public Use
  Company Number: None

PATIENT
  Age: 47 Year
  Sex: Female
  Weight: 81.6475 kg

DRUGS (2)
  1. CYMBALTA [Suspect]
     Indication: INTERVERTEBRAL DISC DISORDER
     Dosage: 60MG DAILY PO
     Route: 048
     Dates: start: 20060701, end: 20080115
  2. CYMBALTA [Suspect]
     Indication: NEURALGIA
     Dosage: 60MG DAILY PO
     Route: 048
     Dates: start: 20060701, end: 20080115

REACTIONS (15)
  - ABDOMINAL DISTENSION [None]
  - ANGER [None]
  - CRYING [None]
  - DIARRHOEA [None]
  - DIZZINESS [None]
  - DRUG WITHDRAWAL SYNDROME [None]
  - ECONOMIC PROBLEM [None]
  - HEADACHE [None]
  - INSOMNIA [None]
  - IRRITABILITY [None]
  - NAUSEA [None]
  - NERVOUS SYSTEM DISORDER [None]
  - PALPITATIONS [None]
  - VERTIGO [None]
  - VOMITING [None]
